FAERS Safety Report 25328346 (Version 2)
Quarter: 2025Q2

REPORT INFORMATION
  Report Type: Report from Study
  Country: US (occurrence: US)
  Receive Date: 20250518
  Receipt Date: 20250618
  Transmission Date: 20250716
  Serious: Yes (Hospitalization, Other)
  Sender: ABBVIE
  Company Number: US-ABBVIE-22K-163-4443055-00

PATIENT
  Age: 50 Year
  Sex: Female
  Weight: 76.657 kg

DRUGS (4)
  1. HUMIRA [Suspect]
     Active Substance: ADALIMUMAB
     Indication: Crohn^s disease
     Dosage: CITRATE FREE, FORM STRENGTH: 40 MILLIGRAM
     Route: 058
     Dates: start: 20180101, end: 202501
  2. HUMIRA [Suspect]
     Active Substance: ADALIMUMAB
     Indication: Ankylosing spondylitis
  3. SHINGRIX [Suspect]
     Active Substance: RECOMBINANT VARICELLA ZOSTER VIRUS (VZV) GLYCOPROTEIN E
     Indication: Herpes zoster
     Route: 065
     Dates: start: 20241002, end: 20241002
  4. SHINGRIX [Suspect]
     Active Substance: RECOMBINANT VARICELLA ZOSTER VIRUS (VZV) GLYCOPROTEIN E
     Indication: Herpes zoster
     Route: 065
     Dates: start: 20250116, end: 20250116

REACTIONS (22)
  - Peripheral venous disease [Recovering/Resolving]
  - Arthralgia [Recovering/Resolving]
  - Blood potassium decreased [Recovered/Resolved with Sequelae]
  - Pain [Recovering/Resolving]
  - Therapeutic product effect decreased [Not Recovered/Not Resolved]
  - Spinal stenosis [Recovering/Resolving]
  - Psoriasis [Recovering/Resolving]
  - Spondylitis [Recovering/Resolving]
  - Intervertebral disc protrusion [Recovering/Resolving]
  - Peripheral swelling [Unknown]
  - Initial insomnia [Recovering/Resolving]
  - Arthritis [Recovering/Resolving]
  - Intervertebral disc protrusion [Recovering/Resolving]
  - Joint swelling [Recovering/Resolving]
  - Neuralgia [Recovering/Resolving]
  - Musculoskeletal disorder [Recovering/Resolving]
  - Nerve compression [Recovering/Resolving]
  - Coordination abnormal [Recovered/Resolved]
  - Hallucination [Recovered/Resolved]
  - Hyperhidrosis [Recovered/Resolved]
  - Fall [Recovered/Resolved]
  - Spinal fracture [Recovered/Resolved]

NARRATIVE: CASE EVENT DATE: 20200101
